FAERS Safety Report 12144452 (Version 1)
Quarter: 2016Q1

REPORT INFORMATION
  Report Type: Spontaneous
  Country: US (occurrence: US)
  Receive Date: 20160304
  Receipt Date: 20160304
  Transmission Date: 20160526
  Serious: No
  Sender: FDA-Public Use
  Company Number: US-ASTRAZENECA-2016SE21951

PATIENT
  Sex: Female

DRUGS (1)
  1. NEXIUM 24HR [Suspect]
     Active Substance: ESOMEPRAZOLE MAGNESIUM
     Indication: GASTROOESOPHAGEAL REFLUX DISEASE
     Dosage: 40 MG, TAKES 2 OF THEM FOR 40MG DOSE
     Route: 048

REACTIONS (4)
  - Drug ineffective [Unknown]
  - Aphonia [Unknown]
  - Throat irritation [Unknown]
  - Product use issue [Unknown]
